FAERS Safety Report 8991401 (Version 3)
Quarter: 2013Q3

REPORT INFORMATION
  Report Type: Report from Study
  Country: JP (occurrence: JP)
  Receive Date: 20121229
  Receipt Date: 20130708
  Transmission Date: 20140515
  Serious: Yes (Hospitalization)
  Sender: FDA-Public Use
  Company Number: JP-009507513-1212JPN010735

PATIENT
  Age: 65 Year
  Sex: Female
  Weight: 52 kg

DRUGS (7)
  1. PEGINTRON [Suspect]
     Indication: CHRONIC HEPATITIS C
     Dosage: 80 MICROGRAM, QW
     Route: 058
     Dates: start: 20120905, end: 20120914
  2. PEGINTRON [Suspect]
     Dosage: 60 MICROGRAM, QW
     Route: 058
     Dates: start: 20120919, end: 20121208
  3. REBETOL [Suspect]
     Indication: CHRONIC HEPATITIS C
     Dosage: 600 MG, QD
     Route: 048
     Dates: start: 20120905, end: 20120914
  4. REBETOL [Suspect]
     Dosage: 400 MG, QD
     Route: 048
     Dates: start: 20120915, end: 20121209
  5. TELAVIC [Suspect]
     Indication: CHRONIC HEPATITIS C
     Dosage: 1500 MILLIGRAM, QD
     Route: 048
     Dates: start: 20120905, end: 20120914
  6. TELAVIC [Suspect]
     Dosage: 750 MG, QD
     Route: 048
     Dates: start: 20120915, end: 20121207
  7. GASTER [Concomitant]
     Indication: PROPHYLAXIS
     Dosage: 40 MG, QD, FORMULATION: POR
     Route: 048
     Dates: start: 20120909, end: 20130110

REACTIONS (2)
  - Gastroenteritis [Recovered/Resolved]
  - Gastroenteritis [Recovered/Resolved]
